FAERS Safety Report 7617030-9 (Version None)
Quarter: 2011Q3

REPORT INFORMATION
  Report Type: 
  Country: None (occurrence: None)
  Receive Date: 20110718
  Receipt Date: 20091031
  Transmission Date: 20111222
  Serious: Yes (Hospitalization, Other)
  Sender: FDA-Public Use
  Company Number: US-BAYER-200937838NA

PATIENT
  Age: 59 Year
  Sex: Female
  Weight: 76 kg

DRUGS (19)
  1. TRASYLOL [Suspect]
     Indication: PRODUCT USED FOR UNKNOWN INDICATION
     Dosage: 1 ML TEST DOSE
     Route: 042
     Dates: start: 20041006, end: 20041006
  2. DOBUTREX [Concomitant]
     Dosage: UNK
     Route: 042
     Dates: start: 20041006
  3. PLASMANATE [Concomitant]
     Dosage: 1000
     Route: 042
     Dates: start: 20041006
  4. NITROGLYCERIN [Concomitant]
     Dosage: UNK
     Route: 042
     Dates: start: 20041005, end: 20041006
  5. RED BLOOD CELLS [Concomitant]
     Dosage: 2 UNITS
     Route: 042
     Dates: start: 20041006
  6. RESTORIL [Concomitant]
     Dosage: 30 MG EVERY HS PRN
     Route: 048
  7. LEVOPHED [Concomitant]
     Dosage: UNK
     Route: 042
     Dates: start: 20041006
  8. TRASYLOL [Suspect]
     Dosage: 200 ML LOADING DOSE
     Route: 042
     Dates: start: 20041006, end: 20041006
  9. TRASYLOL [Suspect]
     Dosage: 50 ML/HOUR INFUSION
     Route: 042
     Dates: start: 20041006, end: 20041006
  10. MICARDIS [Concomitant]
     Dosage: 80 MG, QD
     Route: 048
  11. DARVOCET-N 50 [Concomitant]
     Dosage: 1 QID PRN
     Route: 048
  12. PROTAMINE SULFATE [Concomitant]
     Dosage: 200 MG
     Route: 042
     Dates: start: 20041006
  13. LOPRESSOR [Concomitant]
     Dosage: 50 MG, BID
     Route: 048
  14. LIDOCAINE [Concomitant]
     Dosage: 100 MG
     Route: 042
     Dates: start: 20041006
  15. INDERAL [Concomitant]
     Dosage: 0.5 MG
     Route: 042
     Dates: start: 20041006
  16. ANCEF [Concomitant]
     Dosage: UNK
     Route: 042
     Dates: start: 20041006
  17. HEPARIN [Concomitant]
     Dosage: 23,000 UNITS
     Route: 042
     Dates: start: 20041006
  18. PROCARDIA [Concomitant]
     Dosage: 10 MG
     Route: 060
     Dates: start: 20041006
  19. MANNITOL [Concomitant]
     Dosage: 37.5 GM
     Dates: start: 20041006

REACTIONS (13)
  - RENAL INJURY [None]
  - UNEVALUABLE EVENT [None]
  - PAIN [None]
  - CEREBROVASCULAR ACCIDENT [None]
  - ANXIETY [None]
  - INJURY [None]
  - MULTI-ORGAN FAILURE [None]
  - EMOTIONAL DISTRESS [None]
  - STRESS [None]
  - FEAR [None]
  - ANHEDONIA [None]
  - RENAL FAILURE [None]
  - RENAL IMPAIRMENT [None]
